FAERS Safety Report 21924373 (Version 1)
Quarter: 2023Q1

REPORT INFORMATION
  Report Type: Spontaneous
  Country: US (occurrence: US)
  Receive Date: 20230130
  Receipt Date: 20230130
  Transmission Date: 20230418
  Serious: Yes (Other)
  Sender: FDA-Public Use
  Company Number: US-STRIDES ARCOLAB LIMITED-2022SP016946

PATIENT
  Sex: Female

DRUGS (12)
  1. DOXYCYCLINE [Suspect]
     Active Substance: DOXYCYCLINE
     Indication: Neuralgia
     Dosage: UNK
     Route: 065
  2. DOXYCYCLINE [Suspect]
     Active Substance: DOXYCYCLINE
     Indication: Dry eye
  3. TETRACYCLINE [Suspect]
     Active Substance: TETRACYCLINE
     Indication: Neuralgia
     Dosage: UNK
     Route: 065
  4. TETRACYCLINE [Suspect]
     Active Substance: TETRACYCLINE
     Indication: Dry eye
  5. OMEGA-3-ACID ETHYL ESTERS [Suspect]
     Active Substance: OMEGA-3-ACID ETHYL ESTERS
     Indication: Neuralgia
     Dosage: UNK
     Route: 065
  6. OMEGA-3-ACID ETHYL ESTERS [Suspect]
     Active Substance: OMEGA-3-ACID ETHYL ESTERS
     Indication: Dry eye
  7. CYCLOSPORINE [Suspect]
     Active Substance: CYCLOSPORINE
     Indication: Neuralgia
     Dosage: UNK; (PRESERVATIVE FREE EMULSION)
     Route: 065
  8. CYCLOSPORINE [Suspect]
     Active Substance: CYCLOSPORINE
     Indication: Dry eye
  9. RETINOL [Suspect]
     Active Substance: RETINOL
     Indication: Neuralgia
     Dosage: UNK
     Route: 065
  10. RETINOL [Suspect]
     Active Substance: RETINOL
     Indication: Dry eye
  11. MURO 128 [Suspect]
     Active Substance: SODIUM CHLORIDE
     Indication: Neuralgia
     Dosage: UNK
     Route: 065
  12. MURO 128 [Suspect]
     Active Substance: SODIUM CHLORIDE
     Indication: Dry eye

REACTIONS (2)
  - Treatment failure [Unknown]
  - Off label use [Unknown]
